FAERS Safety Report 15215906 (Version 1)
Quarter: 2018Q3

REPORT INFORMATION
  Report Type: Spontaneous
  Country: US (occurrence: US)
  Receive Date: 20180730
  Receipt Date: 20180730
  Transmission Date: 20181010
  Serious: Yes (Hospitalization, Other)
  Sender: FDA-Public Use
  Company Number: US-ARBOR PHARMACEUTICALS, LLC-US-2018ARB000815

PATIENT
  Age: 48 Year
  Sex: Male

DRUGS (5)
  1. AMPHETAMINE SULFATE. [Suspect]
     Active Substance: AMPHETAMINE SULFATE
     Indication: PERFORMANCE ENHANCING PRODUCT USE
     Dosage: 60 MG, QD, CYCLICAL FOR 7 MONTHS PER YEAR
  2. CAFFEINE. [Suspect]
     Active Substance: CAFFEINE
     Dosage: 80 MG, QD
  3. CAFFEINE. [Suspect]
     Active Substance: CAFFEINE
     Indication: PERFORMANCE ENHANCING PRODUCT USE
     Dosage: 560 MG, QD
  4. ZENZEDI [Suspect]
     Active Substance: DEXTROAMPHETAMINE SULFATE
     Indication: PERFORMANCE ENHANCING PRODUCT USE
     Dosage: 60 MG, QD, CYCLICAL FOR 7 MONTHS PER YEAR
  5. TESTOSTERON                        /00103101/ [Suspect]
     Active Substance: TESTOSTERONE
     Indication: PERFORMANCE ENHANCING PRODUCT USE
     Dosage: UNK

REACTIONS (4)
  - Substance-induced psychotic disorder [Recovered/Resolved]
  - Potentiating drug interaction [Unknown]
  - Intentional product misuse [Unknown]
  - Hormone level abnormal [Unknown]
